FAERS Safety Report 13648349 (Version 6)
Quarter: 2017Q2

REPORT INFORMATION
  Report Type: Report from Study
  Country: US (occurrence: US)
  Receive Date: 20170613
  Receipt Date: 20170619
  Transmission Date: 20170830
  Serious: Yes (Hospitalization)
  Sender: FDA-Public Use
  Company Number: PHHY2017US085223

PATIENT
  Age: 7 Year
  Sex: Female
  Weight: 66.4 kg

DRUGS (26)
  1. CICLOSPORIN [Suspect]
     Active Substance: CYCLOSPORINE
     Dosage: 100 MG, QD
     Route: 065
     Dates: start: 20160309, end: 20160819
  2. HUMIRA [Suspect]
     Active Substance: ADALIMUMAB
     Indication: STILL^S DISEASE
     Dosage: 40 MG, QD
     Route: 065
     Dates: start: 20160106, end: 20160113
  3. ILARIS [Suspect]
     Active Substance: CANAKINUMAB
     Indication: STILL^S DISEASE
     Dosage: 180 MG, QD
     Route: 065
     Dates: start: 20160325, end: 20160413
  4. ACTEMRA [Suspect]
     Active Substance: TOCILIZUMAB
     Indication: STILL^S DISEASE
     Dosage: 500 MG, QD
     Route: 065
     Dates: start: 20160621, end: 20160719
  5. CICLOSPORIN [Suspect]
     Active Substance: CYCLOSPORINE
     Dosage: 150 MG, QD
     Route: 065
     Dates: start: 20160211, end: 20160509
  6. NAPROSYN [Suspect]
     Active Substance: NAPROXEN
     Dosage: 500 MG, UNK
     Route: 065
     Dates: start: 20160420
  7. PREDNISONE. [Concomitant]
     Active Substance: PREDNISONE
     Indication: STILL^S DISEASE
     Dosage: 5 MG, QD
     Route: 065
     Dates: start: 20170510
  8. ILARIS [Suspect]
     Active Substance: CANAKINUMAB
     Dosage: 180 MG, QD
     Route: 065
     Dates: start: 20160428, end: 20160608
  9. CICLOSPORIN [Suspect]
     Active Substance: CYCLOSPORINE
     Dosage: 100 MG, QD
     Route: 065
     Dates: start: 20160826, end: 20160906
  10. RELAFEN [Suspect]
     Active Substance: NABUMETONE
     Dosage: 750 MG, QD
     Route: 065
     Dates: start: 20151118, end: 20151209
  11. NAPROSYN [Suspect]
     Active Substance: NAPROXEN
     Indication: JUVENILE IDIOPATHIC ARTHRITIS
     Dosage: 500 MG, UNK
     Route: 065
     Dates: start: 20150901, end: 20151028
  12. NAPROSYN [Suspect]
     Active Substance: NAPROXEN
     Dosage: 500 MG, QD
     Route: 065
     Dates: start: 20160113, end: 20160413
  13. NAPROXEN. [Concomitant]
     Active Substance: NAPROXEN
     Indication: ARTHRALGIA
     Dosage: 1000 MG, QD
     Route: 065
     Dates: start: 20160420
  14. RANITIDINE. [Concomitant]
     Active Substance: RANITIDINE
     Indication: ABDOMINAL PAIN
     Dosage: 75 MG, QD
     Route: 065
     Dates: start: 20170524
  15. TRI-VITAMIN [Concomitant]
     Indication: PRODUCT USED FOR UNKNOWN INDICATION
     Dosage: 1 DF, QD
     Route: 065
     Dates: start: 20160912
  16. VOLTAREN [Suspect]
     Active Substance: DICLOFENAC SODIUM
     Indication: STILL^S DISEASE
     Dosage: 100 MG, QD
     Route: 065
     Dates: start: 20151209, end: 20160113
  17. RELAFEN [Suspect]
     Active Substance: NABUMETONE
     Indication: STILL^S DISEASE
     Dosage: 500 MG, QD
     Route: 065
     Dates: start: 20151028, end: 20151118
  18. ACTEMRA [Suspect]
     Active Substance: TOCILIZUMAB
     Dosage: 460 MG, QD
     Route: 065
     Dates: start: 20160823, end: 20170419
  19. CICLOSPORIN [Suspect]
     Active Substance: CYCLOSPORINE
     Indication: STILL^S DISEASE
     Dosage: 100 MG, QD
     Route: 065
     Dates: start: 20160113, end: 20160211
  20. KINERET [Suspect]
     Active Substance: ANAKINRA
     Indication: JUVENILE IDIOPATHIC ARTHRITIS
     Dosage: 100 MG, QD
     Route: 065
     Dates: start: 20160113, end: 20160211
  21. ENALAPRIL [Concomitant]
     Active Substance: ENALAPRIL
     Indication: HYPERTENSION
     Dosage: 5 MG, QD
     Route: 065
     Dates: start: 20160921
  22. FERROUS SULFATE. [Concomitant]
     Active Substance: FERROUS SULFATE
     Indication: ANAEMIA
     Dosage: 325 MG, QD
     Route: 065
     Dates: start: 20160803
  23. LORATADINE. [Concomitant]
     Active Substance: LORATADINE
     Indication: RHINITIS ALLERGIC
     Dosage: 10 MG, QD
     Route: 065
     Dates: start: 20161018
  24. KINERET [Suspect]
     Active Substance: ANAKINRA
     Dosage: 100 MG, QD
     Route: 065
     Dates: start: 20160211, end: 20160224
  25. CLOTRIMAZOLE. [Concomitant]
     Active Substance: CLOTRIMAZOLE
     Indication: GENITAL RASH
     Dosage: 1 DF, QD (1 APPLICATION)
     Route: 065
     Dates: start: 20170524
  26. OMEPRAZOLE. [Concomitant]
     Active Substance: OMEPRAZOLE
     Indication: PROPHYLAXIS
     Dosage: 40 MG, QD
     Route: 065
     Dates: start: 20170214

REACTIONS (14)
  - Wound secretion [Unknown]
  - Obesity [Unknown]
  - Paronychia [Recovered/Resolved]
  - Onychalgia [Recovered/Resolved]
  - Paronychia [Recovered/Resolved]
  - Swelling [Unknown]
  - Tenderness [Unknown]
  - Rash erythematous [Unknown]
  - Onychalgia [Unknown]
  - Erythema [Unknown]
  - Weight increased [Unknown]
  - Paronychia [Recovered/Resolved]
  - Nail bed bleeding [Recovered/Resolved]
  - Urinary tract infection [Unknown]

NARRATIVE: CASE EVENT DATE: 20160719
